FAERS Safety Report 9539498 (Version 1)
Quarter: 2013Q2

REPORT INFORMATION
  Report Type: Spontaneous
  Country: US (occurrence: None)
  Receive Date: 20130402
  Receipt Date: 20130402
  Transmission Date: 20140414
  Serious: Yes (Hospitalization)
  Sender: FDA-Public Use
  Company Number: PIR#CC400135923

PATIENT
  Age: 43 Year
  Sex: Female

DRUGS (2)
  1. STERILE WATER FOR INJECTION [Suspect]
     Dosage: LOT NUMBER: J1S702
  2. HEPARIN SODIUM IN 5 % DEXTROSE [Suspect]
     Dosage: LOT NUMBER P5771

REACTIONS (1)
  - Medication error [None]
